FAERS Safety Report 24277924 (Version 1)
Quarter: 2024Q3

REPORT INFORMATION
  Report Type: Spontaneous
  Country: US (occurrence: None)
  Receive Date: 20240830
  Receipt Date: 20240830
  Transmission Date: 20241016
  Serious: Yes (Other)
  Sender: Public
  Company Number: None

PATIENT
  Age: 33 Year
  Sex: Female

DRUGS (2)
  1. LEUPROLIDE [Suspect]
     Active Substance: LEUPROLIDE
     Indication: Infertility female
     Dosage: FREQUENCY : ONCE;?
  2. MENOPUR SDV 75IU [Concomitant]
     Dosage: FREQUENCY : DAILY;?

REACTIONS (2)
  - Therapy cessation [None]
  - Abortion spontaneous [None]
